FAERS Safety Report 6803502-3 (Version None)
Quarter: 2010Q2

REPORT INFORMATION
  Report Type: 
  Country: None (occurrence: None)
  Receive Date: 20100628
  Receipt Date: 20100617
  Transmission Date: 20101027
  Serious: Yes (Hospitalization)
  Sender: FDA-Public Use
  Company Number: JP-JNJFOC-20100508116

PATIENT
  Sex: Female
  Weight: 48 kg

DRUGS (21)
  1. DOXORUBICIN HCL [Suspect]
     Indication: OVARIAN CANCER RECURRENT
     Dosage: COURSE 2
     Route: 042
  2. DOXORUBICIN HCL [Suspect]
     Dosage: COURSE 1
     Route: 042
  3. RAMELTEON [Concomitant]
     Indication: PROPHYLAXIS
     Route: 042
  4. RAMELTEON [Concomitant]
     Route: 042
  5. VITAMEDIN [Concomitant]
     Indication: PROPHYLAXIS
     Route: 042
  6. VITAMEDIN [Concomitant]
     Route: 042
  7. DECADRON [Concomitant]
     Indication: PROPHYLAXIS
     Route: 048
  8. DECADRON [Concomitant]
     Route: 048
  9. DECADRON [Concomitant]
     Route: 048
  10. DECADRON [Concomitant]
     Route: 048
  11. DECADRON [Concomitant]
     Route: 048
  12. DECADRON [Concomitant]
     Route: 048
  13. AZUNOL [Concomitant]
     Indication: PROPHYLAXIS
     Route: 048
  14. ALOSENN [Concomitant]
     Indication: CONSTIPATION
     Route: 048
  15. LECICARBON [Concomitant]
     Indication: CONSTIPATION
     Route: 054
  16. LAXOBERON [Concomitant]
     Indication: CONSTIPATION
     Route: 048
  17. TOFRANIL MITE [Concomitant]
     Indication: STRESS URINARY INCONTINENCE
     Route: 048
  18. SPIROPENT [Concomitant]
     Indication: DRUG USE FOR UNKNOWN INDICATION
     Route: 048
  19. VOLTAREN [Concomitant]
     Indication: DRUG USE FOR UNKNOWN INDICATION
     Route: 048
  20. SELBEX [Concomitant]
     Indication: DRUG USE FOR UNKNOWN INDICATION
     Route: 048
  21. MUCOSTA [Concomitant]
     Indication: PROPHYLAXIS
     Route: 042

REACTIONS (3)
  - CANCER PAIN [None]
  - ILEUS [None]
  - PSEUDOMEMBRANOUS COLITIS [None]
